FAERS Safety Report 6794643-8 (Version None)
Quarter: 2010Q2

REPORT INFORMATION
  Report Type: 
  Country: None (occurrence: None)
  Receive Date: 20100625
  Receipt Date: 20100614
  Transmission Date: 20101027
  Serious: Yes (Hospitalization)
  Sender: FDA-Public Use
  Company Number: NSADSS2002002900

PATIENT

DRUGS (6)
  1. REMICADE [Suspect]
     Route: 041
     Dates: start: 20000101
  2. REMICADE [Suspect]
     Indication: POLYARTHRITIS
     Route: 041
     Dates: start: 20000101
  3. METHOTREXATE [Suspect]
     Indication: POLYARTHRITIS
     Route: 065
     Dates: start: 19890101, end: 19970101
  4. CYCLOSPORINE [Suspect]
     Indication: POLYARTHRITIS
     Route: 065
     Dates: start: 19980101, end: 20000101
  5. GOLD [Concomitant]
     Indication: POLYARTHRITIS
     Route: 065
     Dates: start: 19840101
  6. PLAQUENIL [Concomitant]
     Indication: POLYARTHRITIS
     Route: 065
     Dates: start: 19970101, end: 19980101

REACTIONS (1)
  - PNEUMONIA LEGIONELLA [None]
